FAERS Safety Report 15799574 (Version 1)
Quarter: 2019Q1

REPORT INFORMATION
  Report Type: Spontaneous
  Country: US (occurrence: US)
  Receive Date: 20190108
  Receipt Date: 20190108
  Transmission Date: 20190417
  Serious: Yes (Hospitalization, Other)
  Sender: FDA-Public Use
  Company Number: US-ACCORD-100982

PATIENT
  Age: 65 Year
  Sex: Male

DRUGS (4)
  1. CARBOPLATIN. [Suspect]
     Active Substance: CARBOPLATIN
     Indication: PROSTATE CANCER
     Dates: start: 20170104
  2. BICALUTAMIDE. [Concomitant]
     Active Substance: BICALUTAMIDE
     Indication: PROSTATE CANCER
     Dates: start: 2012
  3. GOSERELIN/GOSERELIN ACETATE [Concomitant]
     Indication: PROSTATE CANCER
     Dates: start: 2012
  4. ETOPOSIDE. [Suspect]
     Active Substance: ETOPOSIDE
     Indication: PROSTATE CANCER
     Dates: start: 20170104

REACTIONS (6)
  - Renal failure [Recovered/Resolved]
  - Haemorrhage urinary tract [Recovered/Resolved]
  - Haematuria [Recovered/Resolved]
  - Obstruction [Recovered/Resolved]
  - Anaemia [Unknown]
  - Off label use [Unknown]

NARRATIVE: CASE EVENT DATE: 20170119
